FAERS Safety Report 6813247-1 (Version None)
Quarter: 2010Q3

REPORT INFORMATION
  Report Type: 
  Country: None (occurrence: None)
  Receive Date: 20100701
  Receipt Date: 20100624
  Transmission Date: 20110219
  Serious: Yes (Hospitalization)
  Sender: FDA-Public Use
  Company Number: US-SANOFI-AVENTIS-2010SA037073

PATIENT
  Age: 43 Year
  Sex: Female

DRUGS (4)
  1. SOLOSTAR [Suspect]
  2. LANTUS [Suspect]
     Route: 058
  3. OPTICLICK [Suspect]
  4. APIDRA [Suspect]
     Route: 058

REACTIONS (1)
  - HYPERGLYCAEMIA [None]
